FAERS Safety Report 5690733-1 (Version None)
Quarter: 2008Q2

REPORT INFORMATION
  Report Type: 
  Country: None (occurrence: None)
  Receive Date: 20080401
  Receipt Date: 20080319
  Transmission Date: 20081010
  Serious: Yes (Hospitalization, Other)
  Sender: FDA-Public Use
  Company Number: DE-ELI_LILLY_AND_COMPANY-DE200803005469

PATIENT
  Sex: Male
  Weight: 64 kg

DRUGS (5)
  1. CYMBALTA [Suspect]
     Dosage: 25 CAPS X 30MG
     Route: 048
     Dates: start: 20080317, end: 20080317
  2. APIDRA [Concomitant]
     Dosage: UNK, UNKNOWN
     Route: 058
     Dates: start: 20080317, end: 20080317
  3. LYRICA [Concomitant]
     Dosage: 40 - 50 CAPS X 25MG
     Route: 048
     Dates: start: 20080317, end: 20080317
  4. NAPROXEN [Concomitant]
     Dosage: 10 TABS X 500MG
     Route: 048
     Dates: start: 20080317, end: 20080317
  5. NOVALGIN [Concomitant]
     Dosage: 28 TABS X 500MG
     Route: 048
     Dates: start: 20080317, end: 20080317

REACTIONS (3)
  - HAEMATEMESIS [None]
  - INTENTIONAL OVERDOSE [None]
  - SUICIDE ATTEMPT [None]
